FAERS Safety Report 6478720-7 (Version None)
Quarter: 2009Q4

REPORT INFORMATION
  Report Type: 
  Country: None (occurrence: None)
  Receive Date: 20091207
  Receipt Date: 20091126
  Transmission Date: 20100525
  Serious: Yes (Other)
  Sender: FDA-Public Use
  Company Number: AT-GILEAD-2009-0025705

PATIENT
  Age: 52 Year
  Sex: Male

DRUGS (4)
  1. TRUVADA [Suspect]
     Indication: HIV INFECTION
     Dates: start: 20080923, end: 20081128
  2. REYATAZ [Concomitant]
     Indication: HIV INFECTION
  3. NORVIR [Concomitant]
  4. DEANXIT [Concomitant]

REACTIONS (1)
  - ARTHRALGIA [None]
